FAERS Safety Report 9538406 (Version 1)
Quarter: 2013Q3

REPORT INFORMATION
  Report Type: Spontaneous
  Country: US (occurrence: US)
  Receive Date: 20130920
  Receipt Date: 20130920
  Transmission Date: 20140515
  Serious: No
  Sender: FDA-Public Use
  Company Number: US-PFIZER INC-2013270654

PATIENT
  Age: 39 Year
  Sex: Male

DRUGS (4)
  1. PRISTIQ [Suspect]
     Indication: BIPOLAR DISORDER
     Dosage: 50 MG, UNK
  2. TRILEPTAL [Concomitant]
     Dosage: 150 MG, 3X/DAY
  3. GEODON [Concomitant]
     Dosage: 40 MG, 2X/DAY
  4. KLONOPIN [Concomitant]
     Dosage: 3 MG, 1X/DAY

REACTIONS (3)
  - Off label use [Recovered/Resolved]
  - Weight increased [Unknown]
  - Poor quality sleep [Unknown]
